FAERS Safety Report 5024830-0 (Version None)
Quarter: 2006Q2

REPORT INFORMATION
  Report Type: 
  Country: None (occurrence: None)
  Receive Date: 20060607
  Receipt Date: 20060601
  Transmission Date: 20061013
  Serious: Yes (Other)
  Sender: FDA-Public Use
  Company Number: HQWYE620201JUN06

PATIENT
  Age: 65 Year
  Sex: Male

DRUGS (1)
  1. TAZOCIN (PIPERACILLIN/TAZOBACTAM, INJECTION) [Suspect]
     Indication: PNEUMONIA
     Dosage: 4.5 G 3X PER 1 DAY INTRAVENOUS DRIP
     Route: 041
     Dates: start: 20060525, end: 20060529

REACTIONS (1)
  - INTERSTITIAL LUNG DISEASE [None]
